FAERS Safety Report 7828855-9 (Version None)
Quarter: 2011Q4

REPORT INFORMATION
  Report Type: 
  Country: None (occurrence: None)
  Receive Date: 20111020
  Receipt Date: 20111014
  Transmission Date: 20120403
  Serious: Yes (Other)
  Sender: FDA-Public Use
  Company Number: CHPA2011US14182

PATIENT
  Age: 79 Year
  Sex: Female

DRUGS (6)
  1. TEMAZEPAM [Concomitant]
     Indication: INSOMNIA
     Dosage: 30 MG, QHS
     Route: 048
     Dates: start: 20111007
  2. VOLTAREN [Suspect]
     Indication: ARTHRITIS
     Dosage: A LITTLE BIT, QD
     Route: 061
  3. PREDNISONE [Concomitant]
     Dosage: 20 MG, QD
     Route: 048
     Dates: start: 20111008, end: 20111001
  4. PREDNISONE [Concomitant]
     Dosage: 10 MG, QD
     Route: 048
     Dates: start: 20111014
  5. CORTISONE ACETATE [Concomitant]
     Dosage: UNK, ONCE
     Dates: start: 20111007, end: 20111007
  6. PLAVIX [Concomitant]

REACTIONS (5)
  - URINARY TRACT INFECTION [None]
  - CHRONIC OBSTRUCTIVE PULMONARY DISEASE [None]
  - UNDERDOSE [None]
  - WRONG TECHNIQUE IN DRUG USAGE PROCESS [None]
  - DRUG DISPENSING ERROR [None]
